FAERS Safety Report 10300495 (Version 1)
Quarter: 2014Q3

REPORT INFORMATION
  Report Type: Report from Study
  Country: FR (occurrence: FR)
  Receive Date: 20140713
  Receipt Date: 20140713
  Transmission Date: 20150326
  Serious: No
  Sender: FDA-Public Use
  Company Number: PHHY2014FR084954

PATIENT
  Age: 66 Year
  Sex: Female

DRUGS (4)
  1. LDK378 [Suspect]
     Active Substance: CERITINIB
     Dosage: 4 DF, DAILY
     Dates: start: 20140422, end: 20140512
  2. LDK378 [Suspect]
     Active Substance: CERITINIB
     Indication: NON-SMALL CELL LUNG CANCER METASTATIC
     Dosage: 5 DF, DAILY
     Dates: start: 20140416, end: 20140420
  3. LDK378 [Suspect]
     Active Substance: CERITINIB
     Dosage: 3 DF, DAILY
     Dates: start: 20140512
  4. LDK378 [Suspect]
     Active Substance: CERITINIB
     Dosage: 450 MG, DAILY
     Dates: start: 20140630

REACTIONS (4)
  - Gilbert^s syndrome [Unknown]
  - Blood bilirubin increased [Unknown]
  - Blood bilirubin unconjugated increased [Not Recovered/Not Resolved]
  - Neutropenia [Not Recovered/Not Resolved]

NARRATIVE: CASE EVENT DATE: 20140703
